FAERS Safety Report 16992759 (Version 1)
Quarter: 2019Q4

REPORT INFORMATION
  Report Type: Spontaneous
  Country: US (occurrence: US)
  Receive Date: 20190923
  Receipt Date: 20190923
  Transmission Date: 20200122
  Serious: No
  Sender: FDA-Public Use
  Company Number: None

PATIENT
  Age: 53 Year
  Sex: Female

DRUGS (2)
  1. ZOLEDRONIC INJ 4MG/5ML [Suspect]
     Active Substance: ZOLEDRONIC ACID
     Dosage: OTHER
     Route: 042
     Dates: start: 201909
  2. LUPRON [Concomitant]
     Active Substance: LEUPROLIDE ACETATE

REACTIONS (1)
  - Off label use [None]

NARRATIVE: CASE EVENT DATE: 20190923
